FAERS Safety Report 6835561-6 (Version None)
Quarter: 2010Q3

REPORT INFORMATION
  Report Type: 
  Country: None (occurrence: None)
  Receive Date: 20100713
  Receipt Date: 20100708
  Transmission Date: 20110219
  Serious: Yes (Other)
  Sender: FDA-Public Use
  Company Number: US-BRISTOL-MYERS SQUIBB COMPANY-15183163

PATIENT
  Age: 68 Year
  Sex: Female

DRUGS (2)
  1. METFORMIN HCL [Suspect]
  2. DIABETA [Suspect]

REACTIONS (1)
  - RENAL IMPAIRMENT [None]
